FAERS Safety Report 7340021-2 (Version None)
Quarter: 2011Q1

REPORT INFORMATION
  Report Type: 
  Country: None (occurrence: None)
  Receive Date: 20110309
  Receipt Date: 20110302
  Transmission Date: 20110831
  Serious: Yes (Hospitalization)
  Sender: FDA-Public Use
  Company Number: US-AMGEN-USACT2011011888

PATIENT
  Age: 55 Year
  Sex: Female
  Weight: 141.95 kg

DRUGS (11)
  1. LORAZEPAM [Concomitant]
     Dosage: UNK
  2. PANITUMUMAB [Suspect]
     Indication: BREAST CANCER METASTATIC
     Dosage: 6 MG/KG, UNK
     Route: 042
     Dates: start: 20101110
  3. ACTOS [Concomitant]
     Dosage: UNK
  4. GEMZAR [Concomitant]
     Indication: BREAST CANCER METASTATIC
     Dosage: 1500 MG, UNK
     Route: 042
     Dates: start: 20101110
  5. CARBOPLATIN [Concomitant]
     Indication: BREAST CANCER METASTATIC
     Dosage: UNK
     Route: 040
     Dates: start: 20101110, end: 20110208
  6. ATENOLOL [Concomitant]
     Dosage: UNK
  7. GLIPIZIDE [Concomitant]
     Dosage: UNK
  8. LEXAPRO [Concomitant]
     Dosage: UNK
  9. TRIAMTERENE AND HYDROCHLOROTHIAZID [Concomitant]
     Dosage: UNK
  10. BENICAR [Concomitant]
     Dosage: UNK
  11. LISINOPRIL [Concomitant]
     Dosage: UNK

REACTIONS (1)
  - FEBRILE NEUTROPENIA [None]
